FAERS Safety Report 16499999 (Version 1)
Quarter: 2019Q3

REPORT INFORMATION
  Report Type: Report from Study
  Country: DO (occurrence: DO)
  Receive Date: 20190701
  Receipt Date: 20190701
  Transmission Date: 20191004
  Serious: Yes (Other)
  Sender: FDA-Public Use
  Company Number: DO-ROCHE-2343788

PATIENT

DRUGS (1)
  1. SOMATROPIN. [Suspect]
     Active Substance: SOMATROPIN
     Indication: GROWTH HORMONE DEFICIENCY
     Route: 065

REACTIONS (7)
  - Thymoma [Unknown]
  - Scoliosis [Unknown]
  - Hypersensitivity [Unknown]
  - Oedema [Unknown]
  - Intracranial pressure increased [Unknown]
  - Hyperglycaemia [Unknown]
  - Epiphysiolysis [Unknown]
